FAERS Safety Report 7248215-1 (Version None)
Quarter: 2011Q1

REPORT INFORMATION
  Report Type: 
  Country: None (occurrence: None)
  Receive Date: 20110127
  Receipt Date: 20110121
  Transmission Date: 20110831
  Serious: Yes (Death, Other)
  Sender: FDA-Public Use
  Company Number: CA-BAYER-200926100NA

PATIENT
  Age: 26 Year
  Sex: Female
  Weight: 135 kg

DRUGS (4)
  1. NAPROXEN [Concomitant]
     Indication: SCIATICA
     Dosage: 750 MG BID
     Route: 048
  2. NAPROXEN [Concomitant]
     Indication: MUSCLE SPASMS
  3. YASMIN [Suspect]
     Indication: ORAL CONTRACEPTION
     Route: 048
     Dates: start: 20090101, end: 20090101
  4. SYMBICORT [Concomitant]
     Indication: ASTHMA
     Route: 065

REACTIONS (6)
  - LOSS OF CONSCIOUSNESS [None]
  - SYNCOPE [None]
  - ELECTROCARDIOGRAM ST SEGMENT ELEVATION [None]
  - PULMONARY EMBOLISM [None]
  - DYSPNOEA [None]
  - CHEST X-RAY ABNORMAL [None]
